FAERS Safety Report 5698790-3 (Version None)
Quarter: 2008Q2

REPORT INFORMATION
  Report Type: 
  Country: None (occurrence: None)
  Receive Date: 20080404
  Receipt Date: 20080324
  Transmission Date: 20081010
  Serious: Yes (Hospitalization, Other)
  Sender: FDA-Public Use
  Company Number: 2008-01133

PATIENT
  Age: 57 Year
  Sex: Male
  Weight: 67 kg

DRUGS (7)
  1. VELCADE [Suspect]
     Indication: MULTIPLE MYELOMA
     Dosage: 1.3 MG/M2, INTRAVENOUS
     Route: 042
     Dates: start: 20070222, end: 20070618
  2. DEXAMETHASONE TAB [Concomitant]
  3. PAMIDRONATE DISODIUM [Concomitant]
  4. DURAGESIC-100 [Concomitant]
  5. NEORECORMON (EPOETIN BETA) [Concomitant]
  6. SEPTRIN FORTE (SULFAMETHOXAZOLE, TRIMETHOPRIM) [Concomitant]
  7. ACYCLOVIR [Concomitant]

REACTIONS (8)
  - ATELECTASIS [None]
  - CANDIDIASIS [None]
  - CARDIAC FAILURE [None]
  - DISEASE PROGRESSION [None]
  - ORTHOPNOEA [None]
  - PNEUMONIA [None]
  - RESPIRATORY FAILURE [None]
  - SUPRAVENTRICULAR TACHYCARDIA [None]
